FAERS Safety Report 10630738 (Version 1)
Quarter: 2014Q4

REPORT INFORMATION
  Report Type: Spontaneous
  Country: US (occurrence: US)
  Receive Date: 20141205
  Receipt Date: 20141205
  Transmission Date: 20150529
  Serious: No
  Sender: FDA-Public Use
  Company Number: US-BRISTOL-MYERS SQUIBB COMPANY-21594262

PATIENT
  Age: 60 Year
  Sex: Female
  Weight: 1.32 kg

DRUGS (27)
  1. APRESOLINE HYDROCHLORIDE [Concomitant]
     Active Substance: HYDRALAZINE HYDROCHLORIDE
  2. BUPROPION [Concomitant]
     Active Substance: BUPROPION
  3. MUPIROCIN. [Concomitant]
     Active Substance: MUPIROCIN
  4. TIZANIDINE (TIZANIDINE) [Concomitant]
     Active Substance: TIZANIDINE
  5. CALCITONIN [Concomitant]
     Active Substance: CALCITONIN
  6. CRESTOR [Concomitant]
     Active Substance: ROSUVASTATIN CALCIUM
  7. ESTRADIOL. [Concomitant]
     Active Substance: ESTRADIOL
  8. IPRATROPIUM [Concomitant]
     Active Substance: IPRATROPIUM
  9. ALBUTEROL INHALER [Concomitant]
     Active Substance: ALBUTEROL
  10. AZELASTINE [Concomitant]
     Active Substance: AZELASTINE
  11. FENOFIBRATE. [Concomitant]
     Active Substance: FENOFIBRATE
  12. KLOR-CON [Concomitant]
     Active Substance: POTASSIUM CHLORIDE
  13. LIDOCAINE. [Concomitant]
     Active Substance: LIDOCAINE
  14. LYRICA [Concomitant]
     Active Substance: PREGABALIN
  15. VOLTAREN [Concomitant]
     Active Substance: DICLOFENAC SODIUM
  16. HYDROCODONE [Concomitant]
     Active Substance: HYDROCODONE
  17. YERVOY [Suspect]
     Active Substance: IPILIMUMAB
     Indication: MALIGNANT MELANOMA
     Dosage: THERAPY START: JUNE OR JUL2014
     Route: 042
     Dates: start: 2014
  18. FUROSEMIDE. [Concomitant]
     Active Substance: FUROSEMIDE
  19. DURAGESIC [Concomitant]
     Active Substance: FENTANYL
  20. LISINOPRIL. [Concomitant]
     Active Substance: LISINOPRIL
  21. NASONEX [Concomitant]
     Active Substance: MOMETASONE FUROATE
  22. NEXIUM [Concomitant]
     Active Substance: ESOMEPRAZOLE MAGNESIUM
  23. PROVENTIL [Concomitant]
     Active Substance: ALBUTEROL
  24. SUMATRIPTAN. [Concomitant]
     Active Substance: SUMATRIPTAN
  25. ZOLPIDEM [Concomitant]
     Active Substance: ZOLPIDEM\ZOLPIDEM TARTRATE
  26. ASTELIN SPRAY [Concomitant]
  27. POLYETHYLENE [Concomitant]
     Active Substance: HIGH DENSITY POLYETHYLENE

REACTIONS (2)
  - Rash [Not Recovered/Not Resolved]
  - Pruritus [Not Recovered/Not Resolved]
